FAERS Safety Report 7832983 (Version 4)
Quarter: 2013Q3

REPORT INFORMATION
  Report Type: Spontaneous
  Country: US (occurrence: US)
  Receive Date: 20110228
  Receipt Date: 20130730
  Transmission Date: 20140515
  Serious: Yes (Hospitalization, Other)
  Sender: FDA-Public Use
  Company Number: US-ROCHE-734429

PATIENT
  Age: 35 Year
  Sex: Male
  Weight: 86.2 kg

DRUGS (1)
  1. ACCUTANE [Suspect]
     Indication: ACNE
     Route: 065
     Dates: start: 1986, end: 1987

REACTIONS (10)
  - Crohn^s disease [Unknown]
  - Perineal abscess [Unknown]
  - Anal fistula [Not Recovered/Not Resolved]
  - Nausea [Unknown]
  - Abdominal pain [Unknown]
  - Rectal haemorrhage [Unknown]
  - Inflammatory bowel disease [Unknown]
  - Liver function test abnormal [Recovering/Resolving]
  - Polyp [Unknown]
  - Leukocytosis [Recovering/Resolving]
